FAERS Safety Report 9692124 (Version 3)
Quarter: 2013Q4

REPORT INFORMATION
  Report Type: Spontaneous
  Country: US (occurrence: US)
  Receive Date: 20131118
  Receipt Date: 20131205
  Transmission Date: 20140711
  Serious: Yes (Hospitalization)
  Sender: FDA-Public Use
  Company Number: US-BIOGENIDEC-2013BI104966

PATIENT
  Sex: Male

DRUGS (11)
  1. TECFIDERA [Suspect]
     Indication: MULTIPLE SCLEROSIS
     Route: 048
     Dates: start: 201307, end: 201307
  2. TECFIDERA [Suspect]
     Indication: MULTIPLE SCLEROSIS
     Route: 048
     Dates: start: 20130729
  3. AMOXICILLIN [Concomitant]
  4. AMPYRA [Concomitant]
  5. BACLOFEN [Concomitant]
  6. CITALOPRAM HYDROBROMIDE [Concomitant]
  7. COPAXONE [Concomitant]
  8. FISH OIL [Concomitant]
  9. LEVOTHYROXINE SODIUM [Concomitant]
  10. SIMVASTATIN [Concomitant]
  11. VITAMIN D [Concomitant]

REACTIONS (1)
  - Hemiplegia [Unknown]
